FAERS Safety Report 14142563 (Version 1)
Quarter: 2017Q4

REPORT INFORMATION
  Report Type: Spontaneous
  Country: IT (occurrence: IT)
  Receive Date: 20171030
  Receipt Date: 20171030
  Transmission Date: 20180321
  Serious: Yes (Other)
  Sender: FDA-Public Use
  Company Number: IT-TEVA-819959ACC

PATIENT
  Age: 56 Year
  Sex: Female
  Weight: 88 kg

DRUGS (1)
  1. PACLITAXEL TEVA ITALIA [Suspect]
     Active Substance: PACLITAXEL
     Indication: UTERINE CANCER
     Route: 041
     Dates: start: 20171018, end: 20171018

REACTIONS (5)
  - Chest discomfort [Recovered/Resolved]
  - Sense of oppression [Recovered/Resolved]
  - Throat tightness [Recovered/Resolved]
  - Back pain [Recovered/Resolved]
  - Erythema [Recovered/Resolved]

NARRATIVE: CASE EVENT DATE: 20171018
